FAERS Safety Report 5056930-3 (Version None)
Quarter: 2006Q2

REPORT INFORMATION
  Report Type: 
  Country: None (occurrence: None)
  Receive Date: 20060622
  Receipt Date: 20051108
  Transmission Date: 20061013
  Serious: Yes (Hospitalization)
  Sender: FDA-Public Use
  Company Number: US-JNJFOC-20040205829

PATIENT
  Age: 42 Year
  Sex: Male
  Weight: 95.709 kg

DRUGS (1)
  1. DURAGESIC-100 [Suspect]
     Indication: PAIN
     Dosage: 100 UG/HR, TRANSDERMAL
     Route: 062
     Dates: start: 20031001, end: 20040101

REACTIONS (7)
  - ABDOMINAL PAIN UPPER [None]
  - DRUG ADMINISTRATION ERROR [None]
  - DRUG WITHDRAWAL SYNDROME [None]
  - NERVOUSNESS [None]
  - RASH [None]
  - TREMOR [None]
  - VOMITING [None]
